FAERS Safety Report 25414524 (Version 1)
Quarter: 2025Q2

REPORT INFORMATION
  Report Type: Spontaneous
  Country: US (occurrence: US)
  Receive Date: 20250609
  Receipt Date: 20250609
  Transmission Date: 20250717
  Serious: No
  Sender: SANOFI AVENTIS
  Company Number: US-SA-2025SA161307

PATIENT
  Age: 78 Year
  Sex: Female

DRUGS (2)
  1. DUPIXENT [Suspect]
     Active Substance: DUPILUMAB
     Indication: Asthma
     Dosage: 300 MG, QOW
     Route: 058
  2. PLAVIX [Suspect]
     Active Substance: CLOPIDOGREL BISULFATE
     Route: 065

REACTIONS (6)
  - Influenza [Unknown]
  - Dyspnoea [Unknown]
  - Fatigue [Not Recovered/Not Resolved]
  - Injection site bruising [Unknown]
  - Dry eye [Unknown]
  - Eye pruritus [Unknown]

NARRATIVE: CASE EVENT DATE: 20250101
